FAERS Safety Report 4830438-X (Version None)
Quarter: 2005Q4

REPORT INFORMATION
  Report Type: 
  Country: None (occurrence: None)
  Receive Date: 20051117
  Receipt Date: 20051110
  Transmission Date: 20060501
  Serious: Yes (Hospitalization, Disabling)
  Sender: FDA-Public Use
  Company Number: AU-BRISTOL-MYERS SQUIBB COMPANY-13180955

PATIENT
  Age: 85 Year

DRUGS (2)
  1. SINEMET CR [Suspect]
     Indication: PARKINSON'S DISEASE
     Route: 048
     Dates: end: 20051001
  2. MODOPAR [Suspect]
     Indication: PARKINSON'S DISEASE
     Route: 048

REACTIONS (1)
  - ANAEMIA HAEMOLYTIC AUTOIMMUNE [None]
